FAERS Safety Report 7950744-X (Version None)
Quarter: 2011Q4

REPORT INFORMATION
  Report Type: 
  Country: None (occurrence: None)
  Receive Date: 20111125
  Receipt Date: 20111116
  Transmission Date: 20120403
  Serious: Yes (Other)
  Sender: FDA-Public Use
  Company Number: DSA_48192_2011

PATIENT
  Sex: Female

DRUGS (1)
  1. ELIDEL [Suspect]
     Indication: PRODUCT USED FOR UNKNOWN INDICATION
     Dosage: DF
     Dates: start: 20030301

REACTIONS (5)
  - HODGKIN'S DISEASE [None]
  - PREGNANCY [None]
  - PUBIC PAIN [None]
  - MATERNAL EXPOSURE DURING PREGNANCY [None]
  - VARICOSE VEIN [None]
